FAERS Safety Report 5957014-X (Version None)
Quarter: 2008Q4

REPORT INFORMATION
  Report Type: 
  Country: None (occurrence: None)
  Receive Date: 20081118
  Receipt Date: 20080828
  Transmission Date: 20090506
  Serious: No
  Sender: FDA-Public Use
  Company Number: A0744944A

PATIENT

DRUGS (2)
  1. COREG CR [Suspect]
     Route: 048
  2. UNKNOWN [Concomitant]

REACTIONS (1)
  - DIARRHOEA [None]
